FAERS Safety Report 7805644-2 (Version None)
Quarter: 2011Q4

REPORT INFORMATION
  Report Type: 
  Country: None (occurrence: None)
  Receive Date: 20111010
  Receipt Date: 20111006
  Transmission Date: 20120403
  Serious: Yes (Hospitalization)
  Sender: FDA-Public Use
  Company Number: DE-BRISTOL-MYERS SQUIBB COMPANY-16001844

PATIENT
  Age: 56 Year
  Sex: Female
  Weight: 105 kg

DRUGS (1)
  1. IPILIMUMAB [Suspect]
     Indication: MALIGNANT MELANOMA
     Route: 042
     Dates: start: 20110713, end: 20110915

REACTIONS (4)
  - RASH MACULO-PAPULAR [None]
  - PYREXIA [None]
  - HYPOTHYROIDISM [None]
  - HYPOPHYSITIS [None]
